FAERS Safety Report 12388210 (Version 2)
Quarter: 2016Q2

REPORT INFORMATION
  Report Type: Report from Study
  Country: US (occurrence: US)
  Receive Date: 20160520
  Receipt Date: 20160608
  Transmission Date: 20160815
  Serious: Yes (Hospitalization)
  Sender: FDA-Public Use
  Company Number: US-GILEAD-2016-0214281

PATIENT
  Age: 73 Year
  Sex: Female
  Weight: 76.19 kg

DRUGS (17)
  1. METOLAZONE. [Concomitant]
     Active Substance: METOLAZONE
  2. MULTIVITAMINS [Concomitant]
     Active Substance: VITAMINS
  3. LANTUS [Concomitant]
     Active Substance: INSULIN GLARGINE
  4. LASIX [Concomitant]
     Active Substance: FUROSEMIDE
  5. WARFARIN [Concomitant]
     Active Substance: WARFARIN
  6. DIGOXIN. [Concomitant]
     Active Substance: DIGOXIN
  7. MAGNESIUM [Concomitant]
     Active Substance: MAGNESIUM
  8. GLYBURIDE. [Concomitant]
     Active Substance: GLYBURIDE
  9. GLYCERYL TRINITRATE [Concomitant]
     Active Substance: NITROGLYCERIN
  10. METOPROLOL. [Concomitant]
     Active Substance: METOPROLOL
  11. ZOLPIDEM [Concomitant]
     Active Substance: ZOLPIDEM\ZOLPIDEM TARTRATE
  12. AMBRISENTAN [Suspect]
     Active Substance: AMBRISENTAN
     Indication: PRODUCT USED FOR UNKNOWN INDICATION
     Dosage: 5 MG, UNK
     Route: 065
     Dates: start: 20160418
  13. ASPIRIN                            /00002701/ [Concomitant]
     Active Substance: ASPIRIN
  14. METFORMIN [Concomitant]
     Active Substance: METFORMIN HYDROCHLORIDE
  15. BENICAR [Concomitant]
     Active Substance: OLMESARTAN MEDOXOMIL
  16. SPIRONOLACTONE. [Concomitant]
     Active Substance: SPIRONOLACTONE
  17. ASCORBIC ACID. [Concomitant]
     Active Substance: ASCORBIC ACID

REACTIONS (2)
  - Multiple fractures [Recovered/Resolved]
  - Fall [Recovered/Resolved]

NARRATIVE: CASE EVENT DATE: 20160425
